FAERS Safety Report 10272919 (Version 1)
Quarter: 2014Q2

REPORT INFORMATION
  Report Type: Spontaneous
  Country: IN (occurrence: None)
  Receive Date: 20140627
  Receipt Date: 20140627
  Transmission Date: 20141212
  Serious: Yes (Hospitalization)
  Sender: FDA-Public Use
  Company Number: None

PATIENT
  Age: 52 Year
  Sex: Male
  Weight: 72 kg

DRUGS (4)
  1. CIPROX /00697201/ [Suspect]
     Indication: URINARY TRACT INFECTION
     Route: 042
     Dates: start: 20140625, end: 20140625
  2. DOLO (PARACETAMOL) [Concomitant]
  3. NUMERIN (ONDANSETRAN) [Concomitant]
  4. BAZERO (PANTOPRAZOLE) [Concomitant]

REACTIONS (3)
  - Pain [None]
  - Pruritus [None]
  - Infusion related reaction [None]
